FAERS Safety Report 25387222 (Version 1)
Quarter: 2025Q2

REPORT INFORMATION
  Report Type: Spontaneous
  Country: JP (occurrence: JP)
  Receive Date: 20250602
  Receipt Date: 20250602
  Transmission Date: 20250716
  Serious: Yes (Hospitalization)
  Sender: ELI LILLY AND COMPANY
  Company Number: JP-ELI_LILLY_AND_COMPANY-JP202505022021

PATIENT

DRUGS (4)
  1. MOUNJARO [Suspect]
     Active Substance: TIRZEPATIDE
     Indication: Type 2 diabetes mellitus
     Route: 065
  2. MOUNJARO [Suspect]
     Active Substance: TIRZEPATIDE
     Route: 058
  3. LYUMJEV JUNIOR [Concomitant]
     Indication: Type 2 diabetes mellitus
     Route: 058
  4. INSULIN GLARGINE BS LILLY [Concomitant]
     Indication: Type 2 diabetes mellitus
     Route: 058

REACTIONS (3)
  - Hypertriglyceridaemia [Unknown]
  - Diabetic ketoacidosis [Recovered/Resolved]
  - Pancreatitis [Recovered/Resolved]
